FAERS Safety Report 8903688 (Version 5)
Quarter: 2013Q1

REPORT INFORMATION
  Report Type: Spontaneous
  Country: US (occurrence: US)
  Receive Date: 20121112
  Receipt Date: 20130328
  Transmission Date: 20140127
  Serious: No
  Sender: FDA-Public Use
  Company Number: US-PFIZER INC-2012280175

PATIENT
  Age: 55 Year
  Sex: Male
  Weight: 170 kg

DRUGS (9)
  1. XANAX [Suspect]
     Indication: RESTLESSNESS
     Dosage: 1 MG, DAILY
     Dates: end: 2011
  2. XANAX [Suspect]
     Indication: ARTHRALGIA
     Dosage: SPLITTING 1MG DAILY IN HALF
     Dates: start: 2011
  3. CELEBREX [Suspect]
     Indication: ARTHRITIS
     Dosage: 100 MG, DAILY
  4. CELEBREX [Suspect]
     Indication: ARTHRALGIA
     Dosage: 200 MG, DAILY
  5. CELEBREX [Suspect]
     Indication: ARTHRALGIA
     Dosage: 200 MG, DAILY
     Dates: start: 2012, end: 201302
  6. CELEBREX [Suspect]
     Indication: ARTHRALGIA
  7. CELEBREX [Suspect]
     Indication: BACK PAIN
  8. CELEBREX [Suspect]
     Indication: MUSCULOSKELETAL PAIN
  9. CELEBREX [Suspect]
     Indication: HEADACHE

REACTIONS (6)
  - Off label use [Unknown]
  - Intentional drug misuse [Unknown]
  - Drug ineffective [Unknown]
  - Drug ineffective [Unknown]
  - Gout [Unknown]
  - Arthropathy [Unknown]
